FAERS Safety Report 8356055-5 (Version None)
Quarter: 2012Q2

REPORT INFORMATION
  Report Type: 
  Country: None (occurrence: None)
  Receive Date: 20120511
  Receipt Date: 20120511
  Transmission Date: 20120825
  Serious: Yes (Other)
  Sender: FDA-Public Use
  Company Number: None

PATIENT
  Age: 64 Year
  Sex: Male
  Weight: 83.9154 kg

DRUGS (1)
  1. LEVOFLOXACIN [Suspect]
     Indication: BRONCHITIS
     Dosage: ONE PER DAY PO
     Route: 048
     Dates: start: 20120319, end: 20120321

REACTIONS (3)
  - PAIN IN EXTREMITY [None]
  - GAIT DISTURBANCE [None]
  - PRODUCT QUALITY ISSUE [None]
